FAERS Safety Report 5395667-8 (Version None)
Quarter: 2007Q3

REPORT INFORMATION
  Report Type: 
  Country: None (occurrence: None)
  Receive Date: 20070724
  Receipt Date: 20070709
  Transmission Date: 20080115
  Serious: Yes (Other)
  Sender: FDA-Public Use
  Company Number: US-BOEHRINGER INGELHEIM PHARMACEUTICALS, INC.-2007-BP-17139PF

PATIENT
  Sex: Female

DRUGS (6)
  1. SPIRIVA [Suspect]
     Indication: CHRONIC OBSTRUCTIVE PULMONARY DISEASE
     Route: 055
     Dates: start: 20070601
  2. ADVAIR DISKUS 100/50 [Concomitant]
  3. CHANTIX [Concomitant]
  4. PRILOSEC [Concomitant]
  5. LISINOPRIL [Concomitant]
  6. NEFAZODONE HCL [Concomitant]

REACTIONS (8)
  - DIARRHOEA [None]
  - DRY EYE [None]
  - EATING DISORDER [None]
  - INCREASED APPETITE [None]
  - METABOLIC DISORDER [None]
  - PANIC ATTACK [None]
  - VISUAL ACUITY REDUCED [None]
  - WEIGHT INCREASED [None]
